FAERS Safety Report 21271457 (Version 2)
Quarter: 2024Q1

REPORT INFORMATION
  Report Type: Report from Study
  Country: KR (occurrence: KR)
  Receive Date: 20220830
  Receipt Date: 20240306
  Transmission Date: 20240410
  Serious: Yes (Hospitalization, Other)
  Sender: FDA-Public Use
  Company Number: KR-TAKEDA-2022TUS058649

PATIENT
  Age: 74 Year
  Sex: Male
  Weight: 64.9 kg

DRUGS (16)
  1. IXAZOMIB [Suspect]
     Active Substance: IXAZOMIB
     Indication: Plasma cell myeloma
     Dosage: 3 MILLIGRAM, QD
     Route: 048
     Dates: start: 20220721
  2. LENALIDOMIDE [Concomitant]
     Active Substance: LENALIDOMIDE
     Indication: Plasma cell myeloma
     Dosage: 10 MILLIGRAM, QD
     Route: 048
     Dates: start: 20220721
  3. DEXAMETHASONE [Concomitant]
     Active Substance: DEXAMETHASONE
     Indication: Plasma cell myeloma
     Dosage: 20 MILLIGRAM, QD
     Route: 048
     Dates: start: 20220721
  4. DEXAMETHASONE [Concomitant]
     Active Substance: DEXAMETHASONE
     Dosage: 20 MILLIGRAM, QD
     Route: 048
     Dates: start: 20220728
  5. ASMA DEC [Concomitant]
     Indication: Chronic obstructive pulmonary disease
     Dosage: 400 MILLIGRAM, BID
     Route: 048
  6. Theolan b sr [Concomitant]
     Indication: Chronic respiratory disease
     Dosage: 100 MILLIGRAM, QD
     Route: 048
  7. TWYNSTA [Concomitant]
     Active Substance: AMLODIPINE BESYLATE\TELMISARTAN
     Indication: Hypertension
     Dosage: UNK UNK, QD
     Route: 048
  8. ASPIRIN [Concomitant]
     Active Substance: ASPIRIN
     Indication: Carotid artery disease
     Dosage: 100 MILLIGRAM, QD
     Route: 048
  9. CRESTOR [Concomitant]
     Active Substance: ROSUVASTATIN CALCIUM
     Indication: Carotid artery disease
     Dosage: 10 MILLIGRAM, QD
     Route: 048
  10. EZET [Concomitant]
     Indication: Carotid artery disease
     Dosage: 10 MILLIGRAM, QD
     Route: 048
  11. DICAMAX [Concomitant]
     Indication: Prophylaxis
     Dosage: UNK UNK, QD
     Route: 048
  12. SULFAMETHOXAZOLE\TRIMETHOPRIM [Concomitant]
     Active Substance: SULFAMETHOXAZOLE\TRIMETHOPRIM
     Indication: Infection prophylaxis
     Dosage: UNK UNK, QD
     Route: 048
  13. ACYCLOVIR [Concomitant]
     Active Substance: ACYCLOVIR
     Indication: Infection prophylaxis
     Dosage: 400 MILLIGRAM, QD
     Route: 048
     Dates: start: 20220721
  14. Neurotin [Concomitant]
     Indication: Prophylaxis
     Dosage: 300 MILLIGRAM, TID
     Route: 048
  15. ALLOPURINOL [Concomitant]
     Active Substance: ALLOPURINOL
     Indication: Prophylaxis
     Dosage: 50 MILLIGRAM, QD
     Route: 048
  16. CYMBALTA [Concomitant]
     Active Substance: DULOXETINE HYDROCHLORIDE
     Indication: Prophylaxis
     Dosage: 60 MILLIGRAM, QD
     Route: 048

REACTIONS (1)
  - Cerebral haemorrhage [Recovered/Resolved]

NARRATIVE: CASE EVENT DATE: 20220728
